FAERS Safety Report 5302642-8 (Version None)
Quarter: 2007Q1

REPORT INFORMATION
  Report Type: 
  Country: None (occurrence: None)
  Receive Date: 20070201
  Receipt Date: 20061217
  Transmission Date: 20070707
  Serious: No
  Sender: FDA-Public Use
  Company Number: 2006PV027067

PATIENT
  Age: 75 Year
  Sex: Male

DRUGS (1)
  1. BYETTA [Suspect]
     Indication: GLUCOSE TOLERANCE IMPAIRED
     Dosage: 5 MCG;BID;SC
     Route: 058
     Dates: start: 20061001

REACTIONS (3)
  - MUSCLE STRAIN [None]
  - RENAL PAIN [None]
  - WEIGHT DECREASED [None]
